FAERS Safety Report 8508077-9 (Version None)
Quarter: 2012Q3

REPORT INFORMATION
  Report Type: 
  Country: None (occurrence: None)
  Receive Date: 20120713
  Receipt Date: 20120711
  Transmission Date: 20120928
  Serious: Yes (Hospitalization, Other)
  Sender: FDA-Public Use
  Company Number: GB-SANOFI-AVENTIS-2012SA023036

PATIENT
  Age: 60 Year
  Sex: Male

DRUGS (4)
  1. LANTUS [Suspect]
     Dosage: DOSE:12 UNIT(S)
     Route: 065
  2. ALL OTHER THERAPEUTIC PRODUCTS [Concomitant]
     Route: 065
  3. CLIKSTAR [Suspect]
     Dosage: DOSE:12 UNIT(S)
     Route: 065
  4. CREON [Concomitant]
     Indication: PANCREATECTOMY
     Route: 065

REACTIONS (3)
  - DIABETIC KETOACIDOSIS [None]
  - DIABETES MELLITUS INADEQUATE CONTROL [None]
  - BLOOD KETONE BODY [None]
